FAERS Safety Report 16266826 (Version 8)
Quarter: 2021Q2

REPORT INFORMATION
  Report Type: Report from Study
  Country: US (occurrence: US)
  Receive Date: 20190502
  Receipt Date: 20210407
  Transmission Date: 20210716
  Serious: Yes (Hospitalization)
  Sender: FDA-Public Use
  Company Number: US-EISAI MEDICAL RESEARCH-EC-2019-055868

PATIENT
  Age: 56 Year
  Sex: Female
  Weight: 95.5 kg

DRUGS (30)
  1. LENVATINIB [Suspect]
     Active Substance: LENVATINIB
     Indication: NEOPLASM
     Route: 048
     Dates: start: 20181220, end: 20190320
  2. LISINOPRIL. [Concomitant]
     Active Substance: LISINOPRIL
  3. LEVOTHYROXINE. [Concomitant]
     Active Substance: LEVOTHYROXINE
  4. LENVATINIB [Suspect]
     Active Substance: LENVATINIB
     Route: 048
     Dates: end: 20210316
  5. PEMBROLIZUMAB. [Suspect]
     Active Substance: PEMBROLIZUMAB
     Indication: NEOPLASM
     Route: 041
     Dates: start: 20181220, end: 20201210
  6. LUBIPROSTONE [Concomitant]
     Active Substance: LUBIPROSTONE
  7. PANTOPRAZOLE [Concomitant]
     Active Substance: PANTOPRAZOLE
  8. TRAMADOL. [Concomitant]
     Active Substance: TRAMADOL
  9. MUCINEX DM [Concomitant]
     Active Substance: DEXTROMETHORPHAN HYDROBROMIDE\GUAIFENESIN
  10. FLAGYL [Concomitant]
     Active Substance: METRONIDAZOLE\METRONIDAZOLE HYDROCHLORIDE
  11. LENVATINIB [Suspect]
     Active Substance: LENVATINIB
     Route: 048
     Dates: start: 20190321, end: 20201209
  12. FUROSEMIDE. [Concomitant]
     Active Substance: FUROSEMIDE
  13. SALIVAMAX [Concomitant]
  14. MIRTAZAPINE. [Concomitant]
     Active Substance: MIRTAZAPINE
  15. CITALOPRAM [Concomitant]
     Active Substance: CITALOPRAM HYDROBROMIDE
  16. LORAZEPAM. [Concomitant]
     Active Substance: LORAZEPAM
  17. ONDANSETRON [Concomitant]
     Active Substance: ONDANSETRON
  18. TRAZODONE [Concomitant]
     Active Substance: TRAZODONE HYDROCHLORIDE
  19. CLINDAMYCIN. [Concomitant]
     Active Substance: CLINDAMYCIN
  20. TRIAMCINOLONE [Concomitant]
     Active Substance: TRIAMCINOLONE
  21. CLONIDINE. [Concomitant]
     Active Substance: CLONIDINE
  22. MAGIC MOUTHWASH [Concomitant]
     Active Substance: DIPHENHYDRAMINE HYDROCHLORIDE\LIDOCAINE HYDROCHLORIDE\NYSTATIN
  23. HYDROXYZINE [Concomitant]
     Active Substance: HYDROXYZINE HYDROCHLORIDE
  24. DAPTOMYCIN. [Concomitant]
     Active Substance: DAPTOMYCIN
  25. PEMBROLIZUMAB. [Suspect]
     Active Substance: PEMBROLIZUMAB
     Route: 041
     Dates: end: 20210121
  26. METOCLOPRAMIDE. [Concomitant]
     Active Substance: METOCLOPRAMIDE
  27. ERTAPENEM. [Concomitant]
     Active Substance: ERTAPENEM SODIUM
  28. METHOCARBAMOL. [Concomitant]
     Active Substance: METHOCARBAMOL
  29. FLONASE [Concomitant]
     Active Substance: FLUTICASONE PROPIONATE
  30. PIPERACILLIN AND TAZOBACTAM [Concomitant]
     Active Substance: PIPERACILLIN SODIUM\TAZOBACTAM SODIUM

REACTIONS (6)
  - Cough [Recovered/Resolved]
  - Diverticulitis [Recovered/Resolved]
  - Hypotension [Recovered/Resolved]
  - Pyrexia [Recovered/Resolved]
  - Cholecystitis [Recovered/Resolved]
  - Adrenal insufficiency [Not Recovered/Not Resolved]

NARRATIVE: CASE EVENT DATE: 20190429
